FAERS Safety Report 7833989-9 (Version None)
Quarter: 2011Q4

REPORT INFORMATION
  Report Type: 
  Country: None (occurrence: None)
  Receive Date: 20111024
  Receipt Date: 20111013
  Transmission Date: 20120403
  Serious: Yes (Other)
  Sender: FDA-Public Use
  Company Number: US-SHIRE-ALL1-2011-03960

PATIENT
  Sex: Female
  Weight: 54.422 kg

DRUGS (3)
  1. VYVANSE [Suspect]
     Dosage: 60 MG, 1X/DAY:QD
     Route: 048
     Dates: start: 20111010
  2. CYMBALTA [Suspect]
     Indication: FIBROMYALGIA
     Dosage: UNK, 1X/DAY:QD
     Route: 048
     Dates: start: 20110901, end: 20110903
  3. VYVANSE [Suspect]
     Indication: ATTENTION DEFICIT/HYPERACTIVITY DISORDER
     Dosage: 60 MG, 1X/DAY:QD
     Route: 048
     Dates: start: 20090101, end: 20110903

REACTIONS (14)
  - WEIGHT INCREASED [None]
  - BLOOD POTASSIUM DECREASED [None]
  - SWELLING [None]
  - CEREBROVASCULAR ACCIDENT [None]
  - PAROSMIA [None]
  - HYPERSENSITIVITY [None]
  - HYPOAESTHESIA [None]
  - APTYALISM [None]
  - HYPERACUSIS [None]
  - DRUG EFFECT DECREASED [None]
  - AGEUSIA [None]
  - LACRIMATION DECREASED [None]
  - INSOMNIA [None]
  - DRUG EFFECT INCREASED [None]
